FAERS Safety Report 11583130 (Version 1)
Quarter: 2015Q4

REPORT INFORMATION
  Report Type: Spontaneous
  Country: US (occurrence: US)
  Receive Date: 20151001
  Receipt Date: 20151001
  Transmission Date: 20160304
  Serious: No
  Sender: FDA-Public Use
  Company Number: US-ROCHE-656166

PATIENT
  Age: 36 Year
  Sex: Female

DRUGS (2)
  1. PEGASYS [Suspect]
     Active Substance: PEGINTERFERON ALFA-2A
     Indication: HEPATITIS C
     Dosage: FORM: PRE-FILLED SYRINGE, PATIENT IN WEEK 26 OF TREATMENT
     Route: 065
  2. RIBASPHERE [Suspect]
     Active Substance: RIBAVIRIN
     Indication: HEPATITIS C
     Dosage: DIVIDED DOSES, PATIENT IN WEEK 26 OF TREATMENT
     Route: 065

REACTIONS (13)
  - Fatigue [Unknown]
  - Diarrhoea [Not Recovered/Not Resolved]
  - Memory impairment [Not Recovered/Not Resolved]
  - Headache [Not Recovered/Not Resolved]
  - Weight decreased [Unknown]
  - Skin fissures [Unknown]
  - Alopecia [Not Recovered/Not Resolved]
  - Depression [Recovering/Resolving]
  - Dry skin [Not Recovered/Not Resolved]
  - Menstruation irregular [Unknown]
  - Coital bleeding [Not Recovered/Not Resolved]
  - Insomnia [Not Recovered/Not Resolved]
  - Impaired healing [Not Recovered/Not Resolved]

NARRATIVE: CASE EVENT DATE: 20090907
